FAERS Safety Report 15285793 (Version 1)
Quarter: 2018Q3

REPORT INFORMATION
  Report Type: Spontaneous
  Country: GB (occurrence: GB)
  Receive Date: 20180816
  Receipt Date: 20180816
  Transmission Date: 20181010
  Serious: Yes (Other)
  Sender: FDA-Public Use
  Company Number: GB-TEVA-2018-GB-942450

PATIENT
  Age: 73 Year
  Sex: Female
  Weight: 85 kg

DRUGS (5)
  1. NITROFURANTOIN. [Suspect]
     Active Substance: NITROFURANTOIN
     Route: 065
     Dates: start: 20180712
  2. RAMIPRIL. [Concomitant]
     Active Substance: RAMIPRIL
     Dosage: TAKE ONE DAILY
     Route: 065
     Dates: start: 20180216
  3. AMLODIPINE [Concomitant]
     Active Substance: AMLODIPINE BESYLATE
     Dosage: TAKE ONE DAILY
     Route: 065
     Dates: start: 20180216
  4. SIMVASTATIN. [Concomitant]
     Active Substance: SIMVASTATIN
     Dosage: ONE TO BE TAKEN AT NIGHT
     Route: 065
     Dates: start: 20180216
  5. CEFALEXIN [Concomitant]
     Active Substance: CEPHALEXIN
     Dosage: TAKE ONE 3 TIMES/DAY
     Route: 065
     Dates: start: 20180712

REACTIONS (1)
  - Sweating fever [Recovered/Resolved]

NARRATIVE: CASE EVENT DATE: 20180712
